FAERS Safety Report 18722887 (Version 2)
Quarter: 2021Q1

REPORT INFORMATION
  Report Type: Report from Study
  Country: GB (occurrence: GB)
  Receive Date: 20210111
  Receipt Date: 20210306
  Transmission Date: 20210419
  Serious: Yes (Other)
  Sender: FDA-Public Use
  Company Number: NVSC2020GB339584

PATIENT
  Age: 34 Year
  Sex: Male

DRUGS (2)
  1. HYRIMOZ [Suspect]
     Active Substance: ADALIMUMAB-ADAZ
     Indication: COLITIS ULCERATIVE
     Dosage: 40MG EOW (0 ? 160MG, WEEK 2 ? 80MG, WEEK 4 ? 40MG)
     Route: 058
  2. HYRIMOZ [Suspect]
     Active Substance: ADALIMUMAB-ADAZ
     Dosage: 40 MG, Q2W
     Route: 058

REACTIONS (12)
  - Dehydration [Unknown]
  - Colitis ulcerative [Unknown]
  - Pain in extremity [Recovered/Resolved]
  - Colitis [Unknown]
  - Defaecation urgency [Unknown]
  - Abdominal discomfort [Unknown]
  - Diarrhoea [Unknown]
  - Chest discomfort [Unknown]
  - Haematochezia [Recovering/Resolving]
  - Peripheral swelling [Recovered/Resolved]
  - Headache [Unknown]
  - Feeling hot [Recovered/Resolved]

NARRATIVE: CASE EVENT DATE: 20210122
